FAERS Safety Report 18628128 (Version 1)
Quarter: 2020Q4

REPORT INFORMATION
  Report Type: Spontaneous
  Country: US (occurrence: US)
  Receive Date: 20201217
  Receipt Date: 20201217
  Transmission Date: 20210114
  Serious: No
  Sender: FDA-Public Use
  Company Number: None

PATIENT
  Age: 21 Year
  Sex: Female
  Weight: 63 kg

DRUGS (4)
  1. STERILE ALCOHOL PREP PADS [Suspect]
     Active Substance: ISOPROPYL ALCOHOL
     Indication: INFECTION
     Dosage: ?          QUANTITY:1 WIPE;?
     Route: 061
     Dates: start: 20201206, end: 20201217
  2. IC SULFAMETHOXAZOLE-TMP DS TABLET [Concomitant]
  3. KYLEENA [Concomitant]
     Active Substance: LEVONORGESTREL
  4. IUD NOS [Concomitant]
     Active Substance: COPPER OR LEVONORGESTREL

REACTIONS (8)
  - Headache [None]
  - Dizziness [None]
  - Confusional state [None]
  - Feeling hot [None]
  - Hypotension [None]
  - Muscle twitching [None]
  - Vision blurred [None]
  - Abdominal pain upper [None]

NARRATIVE: CASE EVENT DATE: 20201217
